FAERS Safety Report 15603347 (Version 2)
Quarter: 2018Q4

REPORT INFORMATION
  Report Type: Spontaneous
  Country: US (occurrence: US)
  Receive Date: 20181109
  Receipt Date: 20181128
  Transmission Date: 20190205
  Serious: Yes (Hospitalization, Disabling, Other)
  Sender: FDA-Public Use
  Company Number: US-009507513-1811USA003101

PATIENT
  Sex: Female

DRUGS (1)
  1. NEXPLANON [Suspect]
     Active Substance: ETONOGESTREL
     Indication: CONTRACEPTION
     Dosage: 1 DOSAGE FORM
     Route: 059
     Dates: start: 20170210, end: 20170419

REACTIONS (12)
  - Surgery [Recovered/Resolved]
  - Depression [Unknown]
  - Chest pain [Unknown]
  - Embolism venous [Unknown]
  - Vein collapse [Recovering/Resolving]
  - Femoral artery embolism [Unknown]
  - Gastrointestinal haemorrhage [Unknown]
  - Post-traumatic stress disorder [Unknown]
  - Anxiety disorder [Unknown]
  - Peripheral embolism [Unknown]
  - Thrombosis [Recovering/Resolving]
  - Deep vein thrombosis [Unknown]

NARRATIVE: CASE EVENT DATE: 2017
